FAERS Safety Report 13443538 (Version 1)
Quarter: 2017Q2

REPORT INFORMATION
  Report Type: Spontaneous
  Country: IT (occurrence: IT)
  Receive Date: 20170414
  Receipt Date: 20170414
  Transmission Date: 20170830
  Serious: Yes (Life-Threatening, Hospitalization, Other)
  Sender: FDA-Public Use
  Company Number: IT-GLAXOSMITHKLINE-IT2017054042

PATIENT
  Age: 3 Year
  Sex: Male

DRUGS (1)
  1. LAMOTRIGINE. [Suspect]
     Active Substance: LAMOTRIGINE
     Dosage: ONE LAMOTRIGIN-200 MG BLISTER WITH 8 TABLETS MISSING

REACTIONS (15)
  - Thirst [Unknown]
  - Dysmetria [Recovered/Resolved]
  - Sinus tachycardia [Recovered/Resolved]
  - Ataxia [Recovered/Resolved]
  - Oculogyric crisis [Recovered/Resolved]
  - Overdose [Unknown]
  - Malaise [Unknown]
  - Toxicity to various agents [Unknown]
  - Agitation [Unknown]
  - Status epilepticus [Recovered/Resolved]
  - Restlessness [Unknown]
  - Dystonia [Recovered/Resolved]
  - Bundle branch block right [Recovered/Resolved]
  - Increased appetite [Unknown]
  - Hyperphagia [Not Recovered/Not Resolved]
